FAERS Safety Report 10869502 (Version 1)
Quarter: 2015Q1

REPORT INFORMATION
  Report Type: Spontaneous
  Country: US (occurrence: US)
  Receive Date: 20150226
  Receipt Date: 20150226
  Transmission Date: 20150721
  Serious: No
  Sender: FDA-Public Use
  Company Number: US-009507513-1502USA011240

PATIENT
  Age: 34 Year
  Sex: Female

DRUGS (3)
  1. LUNESTA [Concomitant]
     Active Substance: ESZOPICLONE
  2. BELSOMRA [Suspect]
     Active Substance: SUVOREXANT
     Indication: INSOMNIA
     Dosage: BREAKING 10 MG TABLET IN HALF TAKE 5 MG, UNK
     Route: 048
     Dates: start: 201502, end: 201502
  3. BELSOMRA [Suspect]
     Active Substance: SUVOREXANT
     Dosage: 10 MG, UNK
     Route: 048
     Dates: start: 201502, end: 201502

REACTIONS (2)
  - Wrong technique in drug usage process [Unknown]
  - Abnormal dreams [Recovered/Resolved]

NARRATIVE: CASE EVENT DATE: 201502
